FAERS Safety Report 8976326 (Version 1)
Quarter: 2012Q4

REPORT INFORMATION
  Report Type: 
  Country: US (occurrence: US)
  Receive Date: 20121220
  Receipt Date: 20121220
  Transmission Date: 20130627
  Serious: No
  Sender: FDA-Public Use
  Company Number: US-BAYER-2012-133322

PATIENT
  Age: 33 Year
  Sex: Female

DRUGS (3)
  1. MIRENA [Suspect]
     Indication: CONTRACEPTION
     Dosage: 20 mcg/24hr, CONT
     Route: 015
     Dates: start: 20121214, end: 20121214
  2. IBUPROFEN [Concomitant]
  3. UNCODEABLE ^UNCLASSIFIABLE^ [Concomitant]
     Indication: MUSCLE RELAXANT

REACTIONS (1)
  - Procedural pain [None]
